FAERS Safety Report 9649913 (Version 1)
Quarter: 2013Q4

REPORT INFORMATION
  Report Type: Spontaneous
  Country: JP (occurrence: JP)
  Receive Date: 20131028
  Receipt Date: 20131028
  Transmission Date: 20140711
  Serious: Yes (Life-Threatening, Congenital Anomaly)
  Sender: FDA-Public Use
  Company Number: JP-ROCHE-1293071

PATIENT
  Age: 0 Day
  Sex: Male
  Weight: 2.63 kg

DRUGS (1)
  1. TAMIFLU [Suspect]
     Indication: INFLUENZA
     Route: 064
     Dates: start: 20130116, end: 20130120

REACTIONS (2)
  - Ventricular septal defect [Recovered/Resolved]
  - Coarctation of the aorta [Recovered/Resolved]
